FAERS Safety Report 16297221 (Version 6)
Quarter: 2019Q3

REPORT INFORMATION
  Report Type: Report from Study
  Country: CN (occurrence: CN)
  Receive Date: 20190510
  Receipt Date: 20190918
  Transmission Date: 20191004
  Serious: Yes (Death, Hospitalization)
  Sender: FDA-Public Use
  Company Number: CN-ROCHE-2315132

PATIENT
  Age: 54 Year
  Sex: Female
  Weight: 45 kg

DRUGS (51)
  1. CELECOXIB. [Concomitant]
     Active Substance: CELECOXIB
     Route: 065
     Dates: start: 20190326, end: 20190424
  2. DEXAMETHASONE. [Concomitant]
     Active Substance: DEXAMETHASONE
     Dosage: POST RADIOTHERAPY DEHYDRATION
     Route: 065
     Dates: start: 20190326, end: 20190327
  3. DIPHENHYDRAMINE. [Concomitant]
     Active Substance: DIPHENHYDRAMINE
     Route: 065
     Dates: start: 20190419, end: 20190419
  4. RANITIDINE. [Concomitant]
     Active Substance: RANITIDINE
     Route: 065
     Dates: start: 20190505, end: 20190505
  5. PREDNISONE ACETATE [Concomitant]
     Active Substance: PREDNISONE ACETATE
     Route: 065
     Dates: start: 20190404, end: 20190505
  6. CALTRATE WITH VITAMIN D [Concomitant]
     Active Substance: CALCIUM CARBONATE\CHOLECALCIFEROL
     Dosage: VITAMIN D600 TABLETS
     Route: 065
     Dates: start: 20190408, end: 20190506
  7. RANITIDINE. [Concomitant]
     Active Substance: RANITIDINE
     Dosage: POST RADIOTHERAPY DEHYDRATION
     Route: 065
     Dates: start: 20190429, end: 20190429
  8. PREGABALIN. [Concomitant]
     Active Substance: PREGABALIN
     Route: 065
     Dates: start: 20190426, end: 20190506
  9. ATEZOLIZUMAB. [Suspect]
     Active Substance: ATEZOLIZUMAB
     Indication: TRIPLE NEGATIVE BREAST CANCER
     Dosage: MOST RECENT DOSE (840 MG) PRIOR TO SAE: 05/MAY/2019
     Route: 042
     Dates: start: 20190322
  10. DEXAMETHASONE. [Concomitant]
     Active Substance: DEXAMETHASONE
     Dosage: POST-RADIOTHERAPY DEHYDRATION
     Route: 065
     Dates: start: 20190328, end: 20190430
  11. DIPHENHYDRAMINE. [Concomitant]
     Active Substance: DIPHENHYDRAMINE
     Route: 065
     Dates: start: 20190405, end: 20190405
  12. TRAMETES ROBINIOPHILA [Concomitant]
     Indication: PROPHYLAXIS
     Route: 065
     Dates: start: 20190424, end: 20190506
  13. INSULIN [Concomitant]
     Active Substance: INSULIN NOS
     Route: 065
     Dates: start: 20190424, end: 20190430
  14. NIFEDIPINE. [Concomitant]
     Active Substance: NIFEDIPINE
     Route: 065
     Dates: start: 20190404, end: 20190404
  15. ZOLEDRONIC ACID [Concomitant]
     Active Substance: ZOLEDRONIC ACID
     Route: 065
     Dates: start: 20190424, end: 20190424
  16. PACLITAXEL. [Suspect]
     Active Substance: PACLITAXEL
     Indication: TRIPLE NEGATIVE BREAST CANCER
     Dosage: DOSE OF LAST PACLITAXEL ADMINISTERED PRIOR TO SAE ONSET 90 MG/M2 ON 05/MAY/2019
     Route: 042
     Dates: start: 20190322, end: 20190505
  17. CELECOXIB. [Concomitant]
     Active Substance: CELECOXIB
     Indication: ANALGESIC THERAPY
     Route: 065
     Dates: start: 20190306, end: 20190314
  18. CELECOXIB. [Concomitant]
     Active Substance: CELECOXIB
     Route: 065
     Dates: start: 20190318, end: 20190318
  19. DEXAMETHASONE ACETATE [Concomitant]
     Active Substance: DEXAMETHASONE ACETATE
     Route: 065
     Dates: start: 20190426, end: 20190426
  20. L-ORNITHINE L-ASPARTATE [Concomitant]
     Active Substance: ORNITHINE ASPARTATE
     Indication: PROPHYLAXIS
     Route: 065
     Dates: start: 20190327, end: 20190424
  21. OXIRACETAM [Concomitant]
     Active Substance: OXIRACETAM
     Dosage: TROPHIC NERVE
     Route: 065
     Dates: start: 20190329, end: 20190506
  22. RANITIDINE. [Concomitant]
     Active Substance: RANITIDINE
     Route: 065
     Dates: start: 20190419, end: 20190419
  23. POLYENE PHOSPHATIDYLCHOLINE [Concomitant]
     Active Substance: PHOSPHOLIPID
     Indication: PROPHYLAXIS
     Route: 065
     Dates: start: 20190327, end: 20190424
  24. DIPHENHYDRAMINE. [Concomitant]
     Active Substance: DIPHENHYDRAMINE
     Route: 065
     Dates: start: 20190426, end: 20190426
  25. DEXAMETHASONE ACETATE [Concomitant]
     Active Substance: DEXAMETHASONE ACETATE
     Indication: PROPHYLAXIS
     Route: 065
     Dates: start: 20190419, end: 20190419
  26. INSULIN [Concomitant]
     Active Substance: INSULIN NOS
     Route: 065
     Dates: start: 20190421, end: 20190424
  27. INSULIN [Concomitant]
     Active Substance: INSULIN NOS
     Route: 065
     Dates: start: 20190427, end: 20190427
  28. MECOBALAMIN [Concomitant]
     Active Substance: METHYLCOBALAMIN
     Dosage: TROPHIC NERVE
     Route: 065
     Dates: start: 20190329, end: 20190506
  29. NIFEDIPINE. [Concomitant]
     Active Substance: NIFEDIPINE
     Route: 065
     Dates: start: 20190419, end: 20190419
  30. OMEPRAZOLE SODIUM [Concomitant]
     Active Substance: OMEPRAZOLE SODIUM
     Indication: PROPHYLAXIS
     Route: 065
     Dates: start: 20190327, end: 20190506
  31. TRAMADOL HYDROCHLORIDE. [Concomitant]
     Active Substance: TRAMADOL HYDROCHLORIDE
     Route: 065
     Dates: start: 20190425, end: 20190425
  32. ZOLEDRONIC ACID [Concomitant]
     Active Substance: ZOLEDRONIC ACID
     Route: 065
     Dates: start: 20190301, end: 20190301
  33. CALCIUM GLUCONATE. [Concomitant]
     Active Substance: CALCIUM GLUCONATE
     Route: 065
     Dates: start: 20190408, end: 20190408
  34. CELECOXIB. [Concomitant]
     Active Substance: CELECOXIB
     Route: 065
     Dates: start: 20190319, end: 20190323
  35. COMPOUND METHOXYPHENAMINE [Concomitant]
     Route: 065
     Dates: start: 20190430, end: 20190506
  36. FENTANYL TRANSDERMAL SYSTEM [Concomitant]
     Active Substance: FENTANYL
     Indication: ANALGESIC THERAPY
     Route: 065
     Dates: start: 20190320, end: 20190320
  37. FENTANYL TRANSDERMAL SYSTEM [Concomitant]
     Active Substance: FENTANYL
     Route: 065
     Dates: start: 20190326, end: 20190416
  38. INSULIN [Concomitant]
     Active Substance: INSULIN NOS
     Route: 065
     Dates: start: 20190419, end: 20190419
  39. RANITIDINE. [Concomitant]
     Active Substance: RANITIDINE
     Indication: PROPHYLAXIS
     Route: 065
     Dates: start: 20190322, end: 20190322
  40. RANITIDINE. [Concomitant]
     Active Substance: RANITIDINE
     Dosage: POST RADIOTHERAPY DEHYDRATION
     Route: 065
     Dates: start: 20190326, end: 20190403
  41. RANITIDINE. [Concomitant]
     Active Substance: RANITIDINE
     Route: 065
     Dates: start: 20190426, end: 20190426
  42. PREGABALIN. [Concomitant]
     Active Substance: PREGABALIN
     Indication: ANALGESIC THERAPY
     Route: 065
     Dates: start: 20190326, end: 20190424
  43. TRAMADOL HYDROCHLORIDE. [Concomitant]
     Active Substance: TRAMADOL HYDROCHLORIDE
     Indication: ANALGESIC THERAPY
     Route: 065
     Dates: start: 20190320, end: 20190320
  44. CALCIUM GLUCONATE. [Concomitant]
     Active Substance: CALCIUM GLUCONATE
     Route: 065
     Dates: start: 20190327, end: 20190427
  45. CELECOXIB. [Concomitant]
     Active Substance: CELECOXIB
     Route: 065
     Dates: start: 20190303, end: 20190303
  46. CELECOXIB. [Concomitant]
     Active Substance: CELECOXIB
     Route: 065
     Dates: start: 20190425, end: 20190506
  47. COMPOUND METHOXYPHENAMINE [Concomitant]
     Route: 065
     Dates: start: 20190402, end: 20190424
  48. DEXAMETHASONE. [Concomitant]
     Active Substance: DEXAMETHASONE
     Indication: PROPHYLAXIS
     Route: 065
     Dates: start: 20190322, end: 20190322
  49. DIPHENHYDRAMINE. [Concomitant]
     Active Substance: DIPHENHYDRAMINE
     Indication: PROPHYLAXIS
     Route: 065
     Dates: start: 20190322, end: 20190322
  50. DEXAMETHASONE ACETATE [Concomitant]
     Active Substance: DEXAMETHASONE ACETATE
     Route: 065
     Dates: start: 20190505, end: 20190505
  51. MANNITOL. [Concomitant]
     Active Substance: MANNITOL
     Dosage: POST RADIOTHERAPY DEHYDRATION
     Route: 065
     Dates: start: 20190326, end: 20190430

REACTIONS (1)
  - Cardiac failure [Fatal]

NARRATIVE: CASE EVENT DATE: 20190506
